FAERS Safety Report 19408329 (Version 1)
Quarter: 2021Q2

REPORT INFORMATION
  Report Type: Spontaneous
  Country: US (occurrence: US)
  Receive Date: 20210611
  Receipt Date: 20210611
  Transmission Date: 20210717
  Serious: No
  Sender: FDA-Public Use
  Company Number: US-ASCEND THERAPEUTICS US, LLC-2112645

PATIENT
  Age: 60 Year
  Sex: Female
  Weight: 64.55 kg

DRUGS (5)
  1. ESTROGEL [Suspect]
     Active Substance: ESTRADIOL
  2. ESTROGEL [Suspect]
     Active Substance: ESTRADIOL
     Indication: HORMONE REPLACEMENT THERAPY
     Route: 061
     Dates: start: 2016
  3. ESTROGEL [Suspect]
     Active Substance: ESTRADIOL
     Route: 065
     Dates: start: 20210420, end: 2021
  4. ESTROGEL [Suspect]
     Active Substance: ESTRADIOL
     Route: 061
     Dates: start: 2016
  5. ESTROGEL [Suspect]
     Active Substance: ESTRADIOL
     Route: 065
     Dates: start: 20210521

REACTIONS (5)
  - Weight decreased [Unknown]
  - Therapeutic product effect decreased [None]
  - Hot flush [Recovered/Resolved]
  - Night sweats [Recovered/Resolved]
  - Product quality issue [None]

NARRATIVE: CASE EVENT DATE: 202104
